FAERS Safety Report 8163091-0 (Version None)
Quarter: 2012Q1

REPORT INFORMATION
  Report Type: 
  Country: None (occurrence: None)
  Receive Date: 20120224
  Receipt Date: 20120131
  Transmission Date: 20120608
  Serious: Yes (Other)
  Sender: FDA-Public Use
  Company Number: JP-GLAXOSMITHKLINE-B0779154A

PATIENT
  Sex: Female

DRUGS (3)
  1. DEPAKENE [Concomitant]
     Indication: EPILEPSY
     Dosage: 400MG PER DAY
     Route: 048
  2. LAMICTAL [Suspect]
     Indication: EPILEPSY
     Dosage: 25MG PER DAY
     Route: 048
     Dates: start: 20111212, end: 20120110
  3. CLONAZEPAM [Concomitant]
     Indication: EPILEPSY
     Dosage: 1MG PER DAY
     Route: 048

REACTIONS (18)
  - ALANINE AMINOTRANSFERASE INCREASED [None]
  - ORAL MUCOSA EROSION [None]
  - BLOOD IMMUNOGLOBULIN E INCREASED [None]
  - HEPATIC FUNCTION ABNORMAL [None]
  - LIP EROSION [None]
  - SCAB [None]
  - RASH MACULO-PAPULAR [None]
  - BLISTER [None]
  - ERYTHEMA [None]
  - OCULAR HYPERAEMIA [None]
  - ERYTHEMA OF EYELID [None]
  - SKIN EROSION [None]
  - PYREXIA [None]
  - UPPER RESPIRATORY TRACT INFLAMMATION [None]
  - ASPARTATE AMINOTRANSFERASE INCREASED [None]
  - EYE DISCHARGE [None]
  - STEVENS-JOHNSON SYNDROME [None]
  - LYMPHADENOPATHY [None]
